FAERS Safety Report 7275374-7 (Version None)
Quarter: 2011Q1

REPORT INFORMATION
  Report Type: 
  Country: None (occurrence: None)
  Receive Date: 20110204
  Receipt Date: 20110118
  Transmission Date: 20110831
  Serious: No
  Sender: FDA-Public Use
  Company Number: US-B.I. PHARMACEUTICALS,INC./RIDGEFIELD-2011-BP-01917BP

PATIENT
  Age: 70 Year
  Sex: Female

DRUGS (6)
  1. CIPRO [Concomitant]
     Indication: INFECTION
     Route: 048
  2. WARFARIN SODIUM [Concomitant]
     Route: 048
  3. SOTELOL [Concomitant]
     Indication: ATRIAL FIBRILLATION
     Route: 048
  4. ACTIGALL [Concomitant]
     Route: 048
  5. SPIRIVA [Suspect]
     Indication: CHRONIC OBSTRUCTIVE PULMONARY DISEASE
     Dosage: 18 MCG
     Route: 055
     Dates: start: 20101001, end: 20101230
  6. LISINOPRIL [Concomitant]
     Route: 048

REACTIONS (1)
  - APHONIA [None]
